FAERS Safety Report 21969084 (Version 1)
Quarter: 2023Q1

REPORT INFORMATION
  Report Type: Spontaneous
  Country: US (occurrence: US)
  Receive Date: 20230208
  Receipt Date: 20230208
  Transmission Date: 20230418
  Serious: No
  Sender: FDA-Public Use
  Company Number: US-BRISTOL-MYERS SQUIBB COMPANY-2023-018878

PATIENT
  Age: 73 Year
  Sex: Female
  Weight: 68.04 kg

DRUGS (3)
  1. REVLIMID [Suspect]
     Active Substance: LENALIDOMIDE
     Indication: Plasma cell myeloma
     Dosage: FREQ : 21 DAYS ON AND THEN OFF FOR 7 DAYS
     Route: 048
  2. vitamine pills [Concomitant]
     Indication: Product used for unknown indication
  3. Calcium pills [Concomitant]
     Indication: Product used for unknown indication

REACTIONS (3)
  - Constipation [Unknown]
  - Body height decreased [Unknown]
  - Weight decreased [Unknown]
